FAERS Safety Report 7007899-3 (Version None)
Quarter: 2010Q3

REPORT INFORMATION
  Report Type: 
  Country: None (occurrence: None)
  Receive Date: 20100920
  Receipt Date: 20100909
  Transmission Date: 20110219
  Serious: Yes (Life-Threatening, Hospitalization)
  Sender: FDA-Public Use
  Company Number: LTI2010A00191

PATIENT
  Age: 69 Year
  Sex: Female

DRUGS (4)
  1. ACTOPLUS MET [Suspect]
     Indication: TYPE 2 DIABETES MELLITUS
     Dosage: (1 DF, 1 D) ORAL
     Route: 048
     Dates: start: 20070807, end: 20071003
  2. GLUCOVANCE [Suspect]
     Indication: TYPE 2 DIABETES MELLITUS
     Dosage: (1 D) ORAL
     Route: 048
     Dates: start: 20070807, end: 20071003
  3. SPIROCTAN (SPIRONOLACTONE) [Suspect]
     Indication: HYPERTENSION
     Dosage: 50 MG (50 MG, 1 IN 1 D) ORAL
     Route: 048
     Dates: end: 20071003
  4. PHYSIOTENS (MOXONIDINE) [Concomitant]

REACTIONS (6)
  - CYTOLYTIC HEPATITIS [None]
  - PANCREATITIS ACUTE [None]
  - PANCREATITIS NECROTISING [None]
  - RENAL FAILURE ACUTE [None]
  - RESPIRATORY FAILURE [None]
  - SEPTIC SHOCK [None]
